FAERS Safety Report 22529836 (Version 2)
Quarter: 2023Q2

REPORT INFORMATION
  Report Type: Spontaneous
  Country: CN (occurrence: CN)
  Receive Date: 20230607
  Receipt Date: 20230615
  Transmission Date: 20230722
  Serious: Yes (Other)
  Sender: FDA-Public Use
  Company Number: CN-Accord-361170

PATIENT
  Age: 63 Year
  Sex: Female

DRUGS (3)
  1. CAPECITABINE [Suspect]
     Active Substance: CAPECITABINE
     Indication: Gastric cancer stage IV
     Dosage: ON DAYS 1-14
     Route: 042
     Dates: start: 20220213, end: 20220906
  2. OXALIPLATIN [Suspect]
     Active Substance: OXALIPLATIN
     Indication: Gastric cancer stage IV
     Dosage: ONCE ON DAY 1
     Dates: start: 20220213, end: 20220906
  3. TISLELIZUMAB [Suspect]
     Active Substance: TISLELIZUMAB
     Indication: Gastric cancer stage IV
     Dosage: FOR EIGHT CYCLES (3 WEEKS PER CYCLE)
     Dates: start: 20220213, end: 20220906

REACTIONS (1)
  - Gastric ulcer haemorrhage [Unknown]

NARRATIVE: CASE EVENT DATE: 20220601
